FAERS Safety Report 6011430-9 (Version None)
Quarter: 2008Q4

REPORT INFORMATION
  Report Type: 
  Country: None (occurrence: None)
  Receive Date: 20081218
  Receipt Date: 20020416
  Transmission Date: 20090506
  Serious: Yes (Death)
  Sender: FDA-Public Use
  Company Number: AT-ROCHE-311507

PATIENT
  Sex: Male

DRUGS (8)
  1. CAPECITABINE [Suspect]
     Route: 048
     Dates: start: 20020211, end: 20020317
  2. GEMCITABINE HCL [Suspect]
     Route: 042
     Dates: start: 20020211, end: 20020311
  3. NEUPOGEN [Concomitant]
     Route: 058
     Dates: start: 20020218, end: 20020223
  4. PREDNISOLONE [Concomitant]
     Route: 048
     Dates: start: 20020218
  5. PANTOPRAZOLE SODIUM [Concomitant]
     Route: 048
     Dates: start: 20020218, end: 20020317
  6. DIGITOXIN TAB [Concomitant]
     Route: 048
     Dates: end: 20020317
  7. DILATREND [Concomitant]
     Route: 048
     Dates: end: 20020317
  8. CREON [Concomitant]
     Route: 048
     Dates: end: 20020317

REACTIONS (1)
  - DEATH [None]
